FAERS Safety Report 7778153-7 (Version None)
Quarter: 2011Q3

REPORT INFORMATION
  Report Type: 
  Country: None (occurrence: None)
  Receive Date: 20110926
  Receipt Date: 20110429
  Transmission Date: 20111222
  Serious: No
  Sender: FDA-Public Use
  Company Number: US-MUTUAL PHARMACEUTICAL COMPANY, INC.-BCTM20110029

PATIENT
  Sex: Female
  Weight: 56.75 kg

DRUGS (7)
  1. LOVASA [Concomitant]
     Indication: BLOOD CHOLESTEROL INCREASED
     Route: 048
  2. HUMIRA [Suspect]
     Indication: PSORIASIS
     Route: 058
     Dates: start: 20110217
  3. PERCOCET [Suspect]
     Indication: FLANK PAIN
     Route: 048
     Dates: start: 20110301, end: 20110301
  4. CETIRIZINE HCL [Concomitant]
     Indication: SEASONAL ALLERGY
     Route: 048
  5. VITAMIN D [Concomitant]
     Indication: VITAMIN SUPPLEMENTATION
     Dosage: 50,000 UNITS
     Route: 048
  6. BACTRIM [Suspect]
     Indication: INFECTION PROPHYLAXIS
     Route: 048
     Dates: start: 20110201, end: 20110301
  7. PERCOCET [Suspect]
     Route: 048
     Dates: start: 20110301

REACTIONS (3)
  - NAUSEA [None]
  - NEPHROLITHIASIS [None]
  - FLANK PAIN [None]
